FAERS Safety Report 4818918-4 (Version None)
Quarter: 2005Q4

REPORT INFORMATION
  Report Type: 
  Country: None (occurrence: None)
  Receive Date: 20051101
  Receipt Date: 20051019
  Transmission Date: 20060501
  Serious: Yes (Death, Hospitalization)
  Sender: FDA-Public Use
  Company Number: 2005136869

PATIENT
  Age: 77 Year
  Sex: Female

DRUGS (5)
  1. LIPITOR [Suspect]
     Indication: CARDIAC VALVE DISEASE
     Dosage: 80 MG (80 MG, 1 IN 1 D), ORAL
     Route: 048
     Dates: start: 20050401, end: 20050901
  2. ARICEPT [Concomitant]
  3. IBUPROFEN [Concomitant]
  4. TERTROXIN (LIOTHYRONINE SODIUM) [Concomitant]
  5. ACETYLSALICYLIC ACID SRT [Concomitant]

REACTIONS (6)
  - BLOOD CALCIUM DECREASED [None]
  - BLOOD PARATHYROID HORMONE INCREASED [None]
  - MALAISE [None]
  - MULTI-ORGAN FAILURE [None]
  - RENAL FAILURE ACUTE [None]
  - RHABDOMYOLYSIS [None]
